FAERS Safety Report 11893247 (Version 1)
Quarter: 2016Q1

REPORT INFORMATION
  Report Type: Spontaneous
  Country: ES (occurrence: ES)
  Receive Date: 20160106
  Receipt Date: 20160106
  Transmission Date: 20160526
  Serious: Yes (Other)
  Sender: FDA-Public Use
  Company Number: ES-MYLANLABS-2015M1048072

PATIENT

DRUGS (1)
  1. EPINEPHRINE. [Suspect]
     Active Substance: EPINEPHRINE
     Indication: REPERFUSION INJURY
     Dosage: 10 ?G, UNK
     Route: 065

REACTIONS (3)
  - Cardiomyopathy [Unknown]
  - Hypertension [Unknown]
  - Bradycardia [Unknown]
